FAERS Safety Report 4414081-2 (Version None)
Quarter: 2004Q3

REPORT INFORMATION
  Report Type: 
  Country: None (occurrence: None)
  Receive Date: 20040803
  Receipt Date: 20040729
  Transmission Date: 20050211
  Serious: Yes (Hospitalization)
  Sender: FDA-Public Use
  Company Number: 200417497GDDC

PATIENT
  Age: 71 Year
  Sex: Female

DRUGS (12)
  1. FLUDEX [Suspect]
     Route: 048
     Dates: end: 20040610
  2. TAHOR [Suspect]
     Route: 048
     Dates: start: 20040501, end: 20040610
  3. AMLOR [Suspect]
     Route: 048
     Dates: end: 20040610
  4. ZOLOFT [Suspect]
     Route: 048
     Dates: end: 20040610
  5. FOZITEC [Suspect]
     Route: 048
     Dates: end: 20040610
  6. VALPROATE SODIUM [Suspect]
     Route: 048
     Dates: end: 20040610
  7. XANAX [Concomitant]
     Dates: end: 20040610
  8. DIFFU K [Concomitant]
     Dates: end: 20040610
  9. TERCIAN [Concomitant]
     Dates: end: 20040610
  10. IMOVANE [Concomitant]
     Dates: end: 20040610
  11. LEVOTHYROXINE SODIUM [Concomitant]
     Dates: end: 20040610
  12. ASPIRIN [Concomitant]
     Dates: end: 20040610

REACTIONS (5)
  - ACUTE ABDOMEN [None]
  - BLOOD CHOLESTEROL INCREASED [None]
  - CHOLELITHIASIS [None]
  - PANCREATITIS ACUTE [None]
  - PANCREATITIS NECROTISING [None]
